FAERS Safety Report 15526599 (Version 1)
Quarter: 2018Q4

REPORT INFORMATION
  Report Type: Spontaneous
  Country: US (occurrence: US)
  Receive Date: 20181018
  Receipt Date: 20181018
  Transmission Date: 20190205
  Serious: No
  Sender: FDA-Public Use
  Company Number: US-LANNETT COMPANY, INC.-US-2018LAN000700

PATIENT

DRUGS (1)
  1. LEVOTHYROXINE SODIUM. [Suspect]
     Active Substance: LEVOTHYROXINE SODIUM
     Indication: HYPOTHYROIDISM
     Dosage: 1 DF, QD
     Route: 048

REACTIONS (7)
  - Product substitution issue [Unknown]
  - Swelling face [Unknown]
  - Eyelids pruritus [Unknown]
  - Dry skin [Unknown]
  - Urticaria [Unknown]
  - Pruritus [Unknown]
  - Inappropriate schedule of product administration [Unknown]
